FAERS Safety Report 7111351-4 (Version None)
Quarter: 2010Q4

REPORT INFORMATION
  Report Type: 
  Country: None (occurrence: None)
  Receive Date: 20101118
  Receipt Date: 20091216
  Transmission Date: 20110411
  Serious: No
  Sender: FDA-Public Use
  Company Number: US-TEVA-218259USA

PATIENT
  Sex: Female
  Weight: 68.1 kg

DRUGS (3)
  1. ALBUTEROL SULFATE AUTOHALER [Suspect]
     Indication: BRONCHITIS
     Dosage: 2 PUFFS EVERY 4-6 HRS
     Route: 055
     Dates: start: 20091208
  2. MOXIFLOXACIN HYDROCHLORIDE [Concomitant]
     Indication: BRONCHITIS
     Dates: start: 20091208
  3. SIMVASTATIN [Concomitant]
     Indication: BLOOD CHOLESTEROL INCREASED

REACTIONS (3)
  - GLOSSODYNIA [None]
  - ORAL DISCOMFORT [None]
  - THROAT IRRITATION [None]
